FAERS Safety Report 18627901 (Version 1)
Quarter: 2020Q4

REPORT INFORMATION
  Report Type: Spontaneous
  Country: US (occurrence: US)
  Receive Date: 20201216
  Receipt Date: 20201216
  Transmission Date: 20210114
  Serious: Yes (Hospitalization)
  Sender: FDA-Public Use
  Company Number: None

PATIENT
  Age: 37 Year
  Sex: Male

DRUGS (4)
  1. YK-11. [Concomitant]
     Active Substance: YK-11
  2. LGD 4033 [Suspect]
     Active Substance: VK-5211
  3. RAD 140 [Suspect]
     Active Substance: VOSILASARM
  4. S-23 [Concomitant]

REACTIONS (2)
  - Paraesthesia [None]
  - Speech disorder [None]
